FAERS Safety Report 9289807 (Version 1)
Quarter: 2013Q2

REPORT INFORMATION
  Report Type: Spontaneous
  Country: US (occurrence: US)
  Receive Date: 20130515
  Receipt Date: 20130515
  Transmission Date: 20140414
  Serious: No
  Sender: FDA-Public Use
  Company Number: US-009507513-1305USA002022

PATIENT
  Sex: Male

DRUGS (2)
  1. COZAAR [Suspect]
     Dosage: UNK
     Route: 048
  2. DIOVAN [Concomitant]
     Dosage: UNK

REACTIONS (1)
  - Adverse event [Unknown]
